FAERS Safety Report 5755687-8 (Version None)
Quarter: 2008Q2

REPORT INFORMATION
  Report Type: 
  Country: None (occurrence: None)
  Receive Date: 20080530
  Receipt Date: 20080530
  Transmission Date: 20081010
  Serious: Yes (Hospitalization)
  Sender: FDA-Public Use
  Company Number: None

PATIENT
  Age: 84 Year
  Sex: Male
  Weight: 58.51 kg

DRUGS (1)
  1. ENOXAPARIN SODIUM [Suspect]
     Dosage: 40 MG EVERY DAY SQ
     Route: 058
     Dates: start: 20080505, end: 20080514

REACTIONS (1)
  - HEPARIN-INDUCED THROMBOCYTOPENIA [None]
